FAERS Safety Report 4838071-0 (Version None)
Quarter: 2005Q4

REPORT INFORMATION
  Report Type: 
  Country: None (occurrence: None)
  Receive Date: 20051121
  Receipt Date: 20051109
  Transmission Date: 20060501
  Serious: Yes (Life-Threatening, Hospitalization)
  Sender: FDA-Public Use
  Company Number: 200509546

PATIENT
  Age: 68 Year
  Sex: Male
  Weight: 80.5 kg

DRUGS (3)
  1. IMMUNE GLOBULIN INTRAVENOUS (HUMAN) [Suspect]
     Indication: DEMYELINATING POLYNEUROPATHY
     Dosage: IV
     Route: 042
     Dates: start: 20051022, end: 20051023
  2. INSULIN [Concomitant]
  3. DIGOXIN [Concomitant]

REACTIONS (7)
  - CATHETER RELATED INFECTION [None]
  - CHILLS [None]
  - DYSPNOEA [None]
  - HYPERTENSION [None]
  - HYPOTENSION [None]
  - PYREXIA [None]
  - SERRATIA BACTERAEMIA [None]
